FAERS Safety Report 21328886 (Version 4)
Quarter: 2025Q3

REPORT INFORMATION
  Report Type: Report from Study
  Country: JP (occurrence: JP)
  Receive Date: 20220913
  Receipt Date: 20250810
  Transmission Date: 20251021
  Serious: Yes (Other)
  Sender: ALEXION PHARMACEUTICALS
  Company Number: 2022A312357

PATIENT
  Age: 25 Year
  Sex: Female
  Weight: 57 kg

DRUGS (55)
  1. ANIFROLUMAB [Suspect]
     Active Substance: ANIFROLUMAB
     Indication: Systemic lupus erythematosus
  2. PREDNISOLONE [Concomitant]
     Active Substance: PREDNISOLONE
     Indication: Systemic lupus erythematosus
     Dates: start: 20221208, end: 20230111
  3. PREDNISOLONE [Concomitant]
     Active Substance: PREDNISOLONE
     Dates: start: 20230112, end: 20230315
  4. PREDNISOLONE [Concomitant]
     Active Substance: PREDNISOLONE
     Dates: start: 20230316, end: 20230524
  5. PREDNISOLONE [Concomitant]
     Active Substance: PREDNISOLONE
     Dates: start: 20230525, end: 20230614
  6. PREDNISOLONE [Concomitant]
     Active Substance: PREDNISOLONE
  7. PREDNISOLONE [Concomitant]
     Active Substance: PREDNISOLONE
  8. PREDNISOLONE [Concomitant]
     Active Substance: PREDNISOLONE
  9. PREDNISOLONE [Concomitant]
     Active Substance: PREDNISOLONE
  10. PREDNISOLONE [Concomitant]
     Active Substance: PREDNISOLONE
  11. PREDNISOLONE [Concomitant]
     Active Substance: PREDNISOLONE
  12. PREDNISOLONE [Concomitant]
     Active Substance: PREDNISOLONE
  13. PREDNISOLONE [Concomitant]
     Active Substance: PREDNISOLONE
  14. PREDNISOLONE [Concomitant]
     Active Substance: PREDNISOLONE
  15. PREDNISOLONE [Concomitant]
     Active Substance: PREDNISOLONE
  16. CYCLOSPORINE [Concomitant]
     Active Substance: CYCLOSPORINE
     Indication: Systemic lupus erythematosus
     Route: 065
  17. MYCOPHENOLATE MOFETIL [Concomitant]
     Active Substance: MYCOPHENOLATE MOFETIL
     Route: 065
  18. MYCOPHENOLATE MOFETIL [Concomitant]
     Active Substance: MYCOPHENOLATE MOFETIL
     Route: 065
  19. MYCOPHENOLATE MOFETIL [Concomitant]
     Active Substance: MYCOPHENOLATE MOFETIL
     Route: 065
  20. VONOPRAZAN FUMARATE [Concomitant]
     Active Substance: VONOPRAZAN FUMARATE
     Indication: Prophylaxis
     Dosage: 20 MILLIGRAM, QD
  21. VONOPRAZAN FUMARATE [Concomitant]
     Active Substance: VONOPRAZAN FUMARATE
  22. VONOPRAZAN FUMARATE [Concomitant]
     Active Substance: VONOPRAZAN FUMARATE
  23. CALONAL [Concomitant]
     Active Substance: ACETAMINOPHEN
     Indication: Pain
     Dosage: 1000 MILLIGRAM, QD
     Dates: start: 20221114
  24. CALONAL [Concomitant]
     Active Substance: ACETAMINOPHEN
     Indication: Pain
     Dosage: 500 MILLIGRAM, QD
     Dates: start: 20221215
  25. CALONAL [Concomitant]
     Active Substance: ACETAMINOPHEN
  26. CALONAL [Concomitant]
     Active Substance: ACETAMINOPHEN
  27. CALONAL [Concomitant]
     Active Substance: ACETAMINOPHEN
  28. TRAMADOL [Concomitant]
     Active Substance: TRAMADOL
     Indication: Pain
     Dosage: 75 MILLIGRAM, QD
     Dates: start: 20221215
  29. ATOVAQUONE [Concomitant]
     Active Substance: ATOVAQUONE
     Indication: Prophylaxis
     Dosage: 1000 MILLIGRAM, QD
     Dates: start: 20221114
  30. ATOVAQUONE [Concomitant]
     Active Substance: ATOVAQUONE
     Dosage: 5 MILLILITER, QD
  31. ATOVAQUONE [Concomitant]
     Active Substance: ATOVAQUONE
  32. ATOVAQUONE [Concomitant]
     Active Substance: ATOVAQUONE
  33. MAGNESIUM OXIDE [Concomitant]
     Active Substance: MAGNESIUM OXIDE
     Indication: Constipation
     Dosage: 990 MILLIGRAM, QD
  34. MAGNESIUM OXIDE [Concomitant]
     Active Substance: MAGNESIUM OXIDE
  35. MAGNESIUM OXIDE [Concomitant]
     Active Substance: MAGNESIUM OXIDE
  36. OLOPATADINE [Concomitant]
     Active Substance: OLOPATADINE
     Indication: Dermatitis allergic
     Dosage: 990 MILLIGRAM, QD
  37. OLOPATADINE [Concomitant]
     Active Substance: OLOPATADINE
  38. OLOPATADINE [Concomitant]
     Active Substance: OLOPATADINE
  39. MYCOPHENOLATE MOFETIL [Concomitant]
     Active Substance: MYCOPHENOLATE MOFETIL
     Route: 065
  40. NEORAL [Concomitant]
     Active Substance: CYCLOSPORINE
     Route: 065
  41. NEORAL [Concomitant]
     Active Substance: CYCLOSPORINE
     Route: 065
  42. LOXOPROFEN [Concomitant]
     Active Substance: LOXOPROFEN
     Indication: Sjogren^s syndrome
  43. LOXOPROFEN [Concomitant]
     Active Substance: LOXOPROFEN
  44. TRAMADOL [Concomitant]
     Active Substance: TRAMADOL
     Indication: Pain
  45. METHYLPREDNISOLONE SODIUM SUCCINATE [Concomitant]
     Active Substance: METHYLPREDNISOLONE SODIUM SUCCINATE
     Route: 065
  46. METHYLPREDNISOLONE SODIUM SUCCINATE [Concomitant]
     Active Substance: METHYLPREDNISOLONE SODIUM SUCCINATE
     Route: 065
  47. CYCLOPHOSPHAMIDE [Concomitant]
     Active Substance: CYCLOPHOSPHAMIDE
     Route: 065
  48. MIZORIBINE [Concomitant]
     Active Substance: MIZORIBINE
     Route: 065
  49. MIZORIBINE [Concomitant]
     Active Substance: MIZORIBINE
     Route: 065
  50. HYDROXYCHLOROQUINE SULFATE [Concomitant]
     Active Substance: HYDROXYCHLOROQUINE SULFATE
     Route: 065
  51. HYDROXYCHLOROQUINE SULFATE [Concomitant]
     Active Substance: HYDROXYCHLOROQUINE SULFATE
     Route: 065
  52. BELIMUMAB [Concomitant]
     Active Substance: BELIMUMAB
     Route: 065
  53. Tacrolimus Actavis [Concomitant]
     Route: 065
  54. BELIMUMAB [Concomitant]
     Active Substance: BELIMUMAB
     Route: 065
  55. TACROLIMUS [Concomitant]
     Active Substance: TACROLIMUS
     Route: 065

REACTIONS (8)
  - Thrombosis [Recovering/Resolving]
  - Breast abscess [Unknown]
  - Extradural abscess [Recovering/Resolving]
  - Herpes zoster [Recovering/Resolving]
  - Post herpetic neuralgia [Unknown]
  - Rash [Unknown]
  - Off label use [Unknown]
  - Respiratory tract infection [Unknown]

NARRATIVE: CASE EVENT DATE: 20220101
